FAERS Safety Report 22643200 (Version 1)
Quarter: 2023Q2

REPORT INFORMATION
  Report Type: Spontaneous
  Country: JP (occurrence: JP)
  Receive Date: 20230627
  Receipt Date: 20230627
  Transmission Date: 20230721
  Serious: Yes (Hospitalization)
  Sender: FDA-Public Use
  Company Number: JP-TEVA-2023-JP-2900320

PATIENT
  Age: 74 Year
  Sex: Male

DRUGS (5)
  1. IRINOTECAN [Suspect]
     Active Substance: IRINOTECAN
     Indication: Colorectal cancer metastatic
     Dosage: IRINOTECAN: 245 MG/BODY
     Route: 065
     Dates: start: 201801
  2. TEGAFUR\URACIL [Suspect]
     Active Substance: TEGAFUR\URACIL
     Indication: Colorectal cancer metastatic
     Dosage: 300 MILLIGRAM DAILY;
     Route: 065
  3. LEUCOVORIN [Suspect]
     Active Substance: LEUCOVORIN
     Indication: Colorectal cancer metastatic
     Dosage: 75 MILLIGRAM DAILY;
     Route: 065
  4. LEUCOVORIN [Suspect]
     Active Substance: LEUCOVORIN
     Dosage: FOLINIC-ACID 335 MG/BODY
     Route: 065
     Dates: start: 201801
  5. FLUOROURACIL [Suspect]
     Active Substance: FLUOROURACIL
     Indication: Colorectal cancer metastatic
     Dosage: FLUOROURACIL: 675 MG/BODY
     Route: 065
     Dates: start: 201801

REACTIONS (2)
  - Hyperammonaemia [Unknown]
  - Drug ineffective [Unknown]
